FAERS Safety Report 4686841-4 (Version None)
Quarter: 2005Q2

REPORT INFORMATION
  Report Type: 
  Country: None (occurrence: None)
  Receive Date: 20050609
  Receipt Date: 20050117
  Transmission Date: 20051028
  Serious: Yes (Hospitalization, Disabling, Other)
  Sender: FDA-Public Use
  Company Number: US-MERCK-0501USA02659

PATIENT
  Age: 59 Year
  Sex: Male
  Weight: 107 kg

DRUGS (20)
  1. VIOXX [Suspect]
     Indication: ARTHRITIS
     Route: 048
     Dates: start: 20010103, end: 20031209
  2. ALTACE [Concomitant]
     Indication: HYPERTENSION
     Route: 065
     Dates: start: 20010428
  3. ALTACE [Concomitant]
     Route: 065
     Dates: start: 20010428
  4. GLUCOPHAGE [Concomitant]
     Indication: DIABETES MELLITUS
     Route: 065
     Dates: start: 19940208
  5. GLUCOPHAGE [Concomitant]
     Route: 065
     Dates: start: 19940208
  6. VERAPAMIL MSD LP [Concomitant]
     Indication: HYPERTENSION
     Route: 065
     Dates: start: 19940208
  7. VERAPAMIL MSD LP [Concomitant]
     Route: 065
     Dates: start: 19940208
  8. HYDROCHLOROTHIAZIDE TABLETS (USP 23) [Concomitant]
     Indication: HYPERTENSION
     Route: 065
     Dates: start: 19940208
  9. HYDROCHLOROTHIAZIDE TABLETS (USP 23) [Concomitant]
     Route: 065
     Dates: start: 19940208
  10. K-DUR 10 [Concomitant]
     Indication: HYPERTENSION
     Route: 065
     Dates: start: 19940208
  11. K-DUR 10 [Concomitant]
     Route: 065
     Dates: start: 19940208
  12. TOPROL-XL [Concomitant]
     Indication: HYPERTENSION
     Route: 065
     Dates: start: 20031119
  13. TOPROL-XL [Concomitant]
     Route: 065
     Dates: start: 20031119
  14. NEXIUM [Concomitant]
     Indication: MYOCARDIAL INFARCTION
     Route: 065
     Dates: start: 20031119
  15. NEXIUM [Concomitant]
     Route: 065
     Dates: start: 20031119
  16. LIPITOR [Concomitant]
     Indication: MYOCARDIAL INFARCTION
     Route: 065
     Dates: start: 20031119
  17. LIPITOR [Concomitant]
     Route: 065
     Dates: start: 20031119
  18. PLAVIX [Concomitant]
     Indication: MYOCARDIAL INFARCTION
     Route: 065
     Dates: start: 20031119
  19. PLAVIX [Concomitant]
     Route: 065
     Dates: start: 20031119
  20. NORVASC [Concomitant]
     Indication: MYOCARDIAL INFARCTION
     Route: 065
     Dates: start: 20031119

REACTIONS (4)
  - BUNDLE BRANCH BLOCK RIGHT [None]
  - CORONARY ARTERY ATHEROSCLEROSIS [None]
  - GASTROOESOPHAGEAL REFLUX DISEASE [None]
  - MYOCARDIAL INFARCTION [None]
